FAERS Safety Report 9470480 (Version 1)
Quarter: 2013Q3

REPORT INFORMATION
  Report Type: Spontaneous
  Country: US (occurrence: None)
  Receive Date: 20130820
  Receipt Date: 20130820
  Transmission Date: 20140515
  Serious: Yes (Disabling, Other)
  Sender: FDA-Public Use
  Company Number: None

PATIENT
  Age: 31 Year
  Sex: Female
  Weight: 71.67 kg

DRUGS (1)
  1. CIPROFLOXACIN [Suspect]
     Indication: URINARY TRACT INFECTION
     Dosage: 1 PILL?TWICE DAILY?TAKEN BY MOUTH?2 COURSES, TOTALING 1000MG/DAY
     Route: 048

REACTIONS (10)
  - Paraesthesia [None]
  - Burning sensation [None]
  - Tremor [None]
  - Muscle twitching [None]
  - Fatigue [None]
  - Myalgia [None]
  - Tendon disorder [None]
  - Neuralgia [None]
  - Anxiety [None]
  - Neuropathy peripheral [None]
